FAERS Safety Report 4626372-0 (Version None)
Quarter: 2005Q2

REPORT INFORMATION
  Report Type: 
  Country: None (occurrence: None)
  Receive Date: 20050404
  Receipt Date: 20050322
  Transmission Date: 20051028
  Serious: Yes (Hospitalization)
  Sender: FDA-Public Use
  Company Number: BE-BRISTOL-MYERS SQUIBB COMPANY-12907242

PATIENT
  Age: 74 Year
  Sex: Female

DRUGS (11)
  1. IRBESARTAN [Interacting]
     Indication: HYPERTENSION
  2. PRINIVIL [Interacting]
     Indication: HYPERTENSION
     Route: 048
  3. RISPERIDONE [Interacting]
  4. LITHIUM CARBONATE [Suspect]
  5. LEVOMEPROMAZINE [Suspect]
  6. FUROSEMIDE [Suspect]
  7. SPIRONOLACTONE [Suspect]
  8. ESCITALOPRAM OXALATE [Suspect]
  9. LORMETAZEPAM [Concomitant]
  10. METFORMIN HCL [Concomitant]
  11. REPAGLINIDE [Concomitant]

REACTIONS (10)
  - APATHY [None]
  - CONFUSIONAL STATE [None]
  - DEHYDRATION [None]
  - DIARRHOEA [None]
  - DRUG INTERACTION [None]
  - DYSARTHRIA [None]
  - LETHARGY [None]
  - OLIGURIA [None]
  - THERAPEUTIC AGENT TOXICITY [None]
  - TREMOR [None]
